FAERS Safety Report 9396284 (Version 2)
Quarter: 2013Q3

REPORT INFORMATION
  Report Type: Spontaneous
  Country: US (occurrence: US)
  Receive Date: 20130711
  Receipt Date: 20130730
  Transmission Date: 20140515
  Serious: No
  Sender: FDA-Public Use
  Company Number: US-PFIZER INC-2013201856

PATIENT
  Sex: Female

DRUGS (3)
  1. LEVOXYL [Suspect]
     Dosage: UNK
  2. LEVOXYL [Suspect]
     Dosage: 100 UG, UNK
  3. ARICEPT [Concomitant]

REACTIONS (1)
  - Drug ineffective [Unknown]
